FAERS Safety Report 17554216 (Version 1)
Quarter: 2020Q1

REPORT INFORMATION
  Report Type: Other
  Country: CA (occurrence: CA)
  Receive Date: 20200318
  Receipt Date: 20200318
  Transmission Date: 20200409
  Serious: Yes (Hospitalization, Other)
  Sender: FDA-Public Use
  Company Number: CA-INTERCEPT-PM2020000680

PATIENT
  Age: 57 Year
  Sex: Male

DRUGS (10)
  1. NADOL                              /00480001/ [Concomitant]
  2. CALCIUM [Concomitant]
     Active Substance: CALCIUM
     Dosage: 500 MG, BID
  3. FUROSEMIDE. [Concomitant]
     Active Substance: FUROSEMIDE
  4. OCALIVA [Suspect]
     Active Substance: OBETICHOLIC ACID
     Indication: PRIMARY BILIARY CHOLANGITIS
     Dosage: 5 MG, QW
     Route: 048
     Dates: start: 20171219
  5. SPIRONOLACTONE. [Concomitant]
     Active Substance: SPIRONOLACTONE
  6. URSODIOL. [Concomitant]
     Active Substance: URSODIOL
  7. VITAMIN D                          /00107901/ [Concomitant]
     Active Substance: ERGOCALCIFEROL
     Dosage: 1000 IU, BID
  8. LIPITOR [Concomitant]
     Active Substance: ATORVASTATIN CALCIUM
     Dosage: 500 UNK, UNK
  9. ZAXINE [Concomitant]
     Active Substance: RIFAXIMIN
  10. PANTOPRAZOLE [Concomitant]
     Active Substance: PANTOPRAZOLE

REACTIONS (5)
  - Asthenia [Unknown]
  - Hepatic cirrhosis [Unknown]
  - Neurotoxicity [Unknown]
  - Confusional state [Unknown]
  - Meniscus injury [Unknown]

NARRATIVE: CASE EVENT DATE: 201808
